FAERS Safety Report 22309002 (Version 1)
Quarter: 2023Q2

REPORT INFORMATION
  Report Type: Spontaneous
  Country: US (occurrence: None)
  Receive Date: 20230510
  Receipt Date: 20230510
  Transmission Date: 20230721
  Serious: Yes (Other)
  Sender: FDA-Public Use
  Company Number: None

PATIENT
  Age: 30 Year
  Sex: Male

DRUGS (2)
  1. DEFERASIROX [Suspect]
     Active Substance: DEFERASIROX
     Indication: Thalassaemia
     Dosage: OTHER QUANTITY : 1 TABLET;?FREQUENCY : DAILY; EVERY EVENING?
     Route: 048
     Dates: start: 20211014
  2. DEFERASIROX [Suspect]
     Active Substance: DEFERASIROX
     Indication: Iron metabolism disorder

REACTIONS (3)
  - Therapy interrupted [None]
  - Stress [None]
  - Memory impairment [None]

NARRATIVE: CASE EVENT DATE: 20230510
